FAERS Safety Report 11770658 (Version 1)
Quarter: 2015Q4

REPORT INFORMATION
  Report Type: Report from Study
  Country: DE (occurrence: DE)
  Receive Date: 20151123
  Receipt Date: 20151123
  Transmission Date: 20160304
  Serious: Yes (Hospitalization)
  Sender: FDA-Public Use
  Company Number: DE-ABBVIE-15K-062-1461654-00

PATIENT
  Age: 45 Year
  Sex: Female
  Weight: 63 kg

DRUGS (1)
  1. HUMIRA [Suspect]
     Active Substance: ADALIMUMAB
     Indication: CROHN^S DISEASE
     Route: 058
     Dates: start: 20140826, end: 201501

REACTIONS (6)
  - Gastrointestinal mucosa hyperaemia [Unknown]
  - Crohn^s disease [Recovering/Resolving]
  - Arthralgia [Unknown]
  - Crohn^s disease [Recovered/Resolved]
  - Erythema nodosum [Unknown]
  - Aphthous ulcer [Unknown]

NARRATIVE: CASE EVENT DATE: 20150616
